FAERS Safety Report 21544695 (Version 2)
Quarter: 2022Q4

REPORT INFORMATION
  Report Type: Report from Study
  Country: CA (occurrence: CA)
  Receive Date: 20221102
  Receipt Date: 20221205
  Transmission Date: 20230113
  Serious: Yes (Other)
  Sender: FDA-Public Use
  Company Number: CA-HLS-202201922

PATIENT
  Age: 67 Year
  Sex: Male

DRUGS (2)
  1. CLOZARIL [Suspect]
     Active Substance: CLOZAPINE
     Indication: Parkinson^s disease
     Route: 065
  2. CLOZARIL [Suspect]
     Active Substance: CLOZAPINE
     Indication: Parkinson^s disease
     Dosage: 37.5 MG PER DAY
     Route: 048
     Dates: start: 20220516

REACTIONS (4)
  - Off label use [Not Recovered/Not Resolved]
  - Parkinson^s disease [Unknown]
  - Neurological symptom [Recovered/Resolved]
  - Psychotic symptom [Not Recovered/Not Resolved]

NARRATIVE: CASE EVENT DATE: 20220516
